FAERS Safety Report 14067304 (Version 2)
Quarter: 2018Q1

REPORT INFORMATION
  Report Type: Spontaneous
  Country: AU (occurrence: AU)
  Receive Date: 20171010
  Receipt Date: 20180108
  Transmission Date: 20180508
  Serious: Yes (Death, Hospitalization, Other)
  Sender: FDA-Public Use
  Company Number: AU-AMGEN-AUSSP2017150776

PATIENT
  Age: 83 Year
  Sex: Female

DRUGS (1)
  1. SENSIPAR [Suspect]
     Active Substance: CINACALCET HYDROCHLORIDE
     Indication: CALCIPHYLAXIS
     Dosage: 60 MG, QD
     Route: 048
     Dates: start: 201706, end: 201709

REACTIONS (2)
  - Off label use [Unknown]
  - Calciphylaxis [Fatal]

NARRATIVE: CASE EVENT DATE: 20170911
